FAERS Safety Report 12358127 (Version 5)
Quarter: 2016Q2

REPORT INFORMATION
  Report Type: Report from Study
  Country: US (occurrence: US)
  Receive Date: 20160512
  Receipt Date: 20160531
  Transmission Date: 20160815
  Serious: Yes (Other)
  Sender: FDA-Public Use
  Company Number: US-AMGEN-USASL2016058259

PATIENT
  Age: 73 Year
  Sex: Female

DRUGS (2)
  1. ENBREL [Suspect]
     Active Substance: ETANERCEPT
     Indication: RHEUMATOID ARTHRITIS
     Dosage: UNK UNK, QWK
     Route: 065
     Dates: start: 2001
  2. ENBREL [Suspect]
     Active Substance: ETANERCEPT
     Dosage: UNK
     Route: 065

REACTIONS (11)
  - Appendicitis [Unknown]
  - Musculoskeletal disorder [Unknown]
  - Pain in extremity [Unknown]
  - Infection [Unknown]
  - Vector-borne transmission of infection [Unknown]
  - Malaise [Unknown]
  - Decreased immune responsiveness [Unknown]
  - Arthralgia [Unknown]
  - Confusional state [Unknown]
  - Nasopharyngitis [Unknown]
  - Musculoskeletal pain [Unknown]
